FAERS Safety Report 8423140 (Version 9)
Quarter: 2013Q2

REPORT INFORMATION
  Report Type: Spontaneous
  Country: FR (occurrence: None)
  Receive Date: 20120210
  Receipt Date: 20130508
  Transmission Date: 20140414
  Serious: Yes (Hospitalization)
  Sender: FDA-Public Use
  Company Number: US-2012-10039

PATIENT
  Age: 44 Year
  Sex: Female
  Weight: 60 kg

DRUGS (4)
  1. TOLVAPTAN [Suspect]
     Indication: CONGENITAL CYSTIC KIDNEY DISEASE
     Route: 048
     Dates: start: 20111112, end: 20120111
  2. PERINDOPRIL (PERINDOPRIL ERBUMINE) [Concomitant]
  3. MAGNESIUM (ALUMINIUM HYDROXIDE, MAGNESIUM HYDROXIDE) [Concomitant]
  4. PARACETAMOL (PARACETAMOL) [Concomitant]

REACTIONS (17)
  - Drug-induced liver injury [None]
  - Blood creatinine increased [None]
  - Blood uric acid increased [None]
  - Blood glucose increased [None]
  - Blood bicarbonate decreased [None]
  - Blood albumin decreased [None]
  - Blood bilirubin increased [None]
  - Protein total decreased [None]
  - Hepatitis cholestatic [None]
  - Hepatitis [None]
  - Biliary dilatation [None]
  - Gallbladder disorder [None]
  - Magnesium deficiency [None]
  - Hepatitis A antibody positive [None]
  - Epstein-Barr virus test positive [None]
  - Varicella virus test positive [None]
  - Hepatic necrosis [None]
